FAERS Safety Report 7337678-9 (Version None)
Quarter: 2011Q1

REPORT INFORMATION
  Report Type: 
  Country: None (occurrence: None)
  Receive Date: 20110228
  Receipt Date: 20110216
  Transmission Date: 20110831
  Serious: Yes (Other)
  Sender: FDA-Public Use
  Company Number: 2010JP001659

PATIENT
  Age: 13 Year
  Sex: Female
  Weight: 39.4 kg

DRUGS (13)
  1. PREDNISOLONE [Concomitant]
  2. INCREMIN (FERRIC PYROPHOSPHATE) [Concomitant]
  3. NEORAL [Concomitant]
  4. TACROLIMUS [Suspect]
     Indication: LUPUS NEPHRITIS
     Dosage: SEE IMAGE
     Route: 048
     Dates: start: 20071228, end: 20080310
  5. TACROLIMUS [Suspect]
     Indication: LUPUS NEPHRITIS
     Dosage: SEE IMAGE
     Route: 048
     Dates: start: 20080311, end: 20080728
  6. TACROLIMUS [Suspect]
     Indication: LUPUS NEPHRITIS
     Dosage: SEE IMAGE
     Route: 048
     Dates: start: 20080729, end: 20080929
  7. TACROLIMUS [Suspect]
     Indication: LUPUS NEPHRITIS
     Dosage: SEE IMAGE
     Route: 048
     Dates: start: 20081115, end: 20091015
  8. TACROLIMUS [Suspect]
     Indication: LUPUS NEPHRITIS
     Dosage: SEE IMAGE
     Route: 048
     Dates: start: 20080930, end: 20081114
  9. TACROLIMUS [Suspect]
     Indication: LUPUS NEPHRITIS
     Dosage: SEE IMAGE
     Route: 048
     Dates: start: 20071122, end: 20071227
  10. TACROLIMUS [Suspect]
     Indication: LUPUS NEPHRITIS
     Dosage: SEE IMAGE
     Route: 048
     Dates: start: 20091016
  11. PERSANTIN [Concomitant]
  12. LEUPLIN (LEUPRORELIN ACETATE) [Concomitant]
  13. ACTONEL [Concomitant]

REACTIONS (5)
  - IRON DEFICIENCY ANAEMIA [None]
  - MENORRHAGIA [None]
  - COUGH [None]
  - RASH [None]
  - LOSS OF CONSCIOUSNESS [None]
